FAERS Safety Report 10253406 (Version 1)
Quarter: 2014Q2

REPORT INFORMATION
  Report Type: Spontaneous
  Country: US (occurrence: US)
  Receive Date: 20140623
  Receipt Date: 20140623
  Transmission Date: 20141212
  Serious: No
  Sender: FDA-Public Use
  Company Number: US-SHIONOGI, INC-2014000483

PATIENT
  Age: 56 Year
  Sex: Female

DRUGS (2)
  1. OSPHENA [Suspect]
     Indication: DYSPAREUNIA
     Dosage: 60 MG, QD
     Route: 048
     Dates: start: 20140424, end: 20140527
  2. PREMARIN [Concomitant]
     Indication: HYSTERECTOMY
     Dosage: 0.3 MG, QD
     Route: 048
     Dates: start: 1994, end: 20140423

REACTIONS (1)
  - Hot flush [Unknown]
